FAERS Safety Report 12261575 (Version 1)
Quarter: 2016Q2

REPORT INFORMATION
  Report Type: Spontaneous
  Country: US (occurrence: None)
  Receive Date: 20160412
  Receipt Date: 20160412
  Transmission Date: 20160815
  Serious: Yes (Life-Threatening)
  Sender: FDA-Public Use
  Company Number: None

PATIENT
  Age: 53 Year
  Sex: Male
  Weight: 66.5 kg

DRUGS (1)
  1. ARSENIC TRIOXIDE, UNKNOWN [Suspect]
     Active Substance: ARSENIC TRIOXIDE
     Indication: ACUTE PROMYELOCYTIC LEUKAEMIA
     Route: 041
     Dates: start: 20160201, end: 20160404

REACTIONS (2)
  - Ventricular tachycardia [None]
  - Sinus tachycardia [None]

NARRATIVE: CASE EVENT DATE: 20160205
